FAERS Safety Report 18788545 (Version 1)
Quarter: 2021Q1

REPORT INFORMATION
  Report Type: Spontaneous
  Country: US (occurrence: US)
  Receive Date: 20210125
  Receipt Date: 20210125
  Transmission Date: 20210419
  Serious: No
  Sender: FDA-Public Use
  Company Number: US-ROCHE-2686343

PATIENT

DRUGS (2)
  1. RITUXAN [Suspect]
     Active Substance: RITUXIMAB
     Dosage: RECEIVED TOTAL OF 7 DOSES
     Route: 065
     Dates: start: 201504, end: 201511
  2. RITUXAN [Suspect]
     Active Substance: RITUXIMAB
     Indication: B-CELL LYMPHOMA
     Route: 065
     Dates: start: 2015

REACTIONS (2)
  - Cyclic neutropenia [Not Recovered/Not Resolved]
  - Lymphocyte count decreased [Recovered/Resolved]
